FAERS Safety Report 6216989-4 (Version None)
Quarter: 2009Q2

REPORT INFORMATION
  Report Type: 
  Country: None (occurrence: None)
  Receive Date: 20090604
  Receipt Date: 20090521
  Transmission Date: 20091009
  Serious: Yes (Hospitalization)
  Sender: FDA-Public Use
  Company Number: 000887

PATIENT
  Sex: Female
  Weight: 75 kg

DRUGS (5)
  1. ROTIGOTINE (ROTIGOTINE) [Suspect]
     Indication: PARKINSON'S DISEASE
     Dosage: (TRANSDERMAL)
     Route: 062
     Dates: start: 20090420, end: 20090507
  2. CO-DYDRAMOL [Concomitant]
  3. DIAZEPAM [Concomitant]
  4. MADOPAR /00349201/ [Concomitant]
  5. PRAMIPEXOLE DIHYDROCHLORIDE [Concomitant]

REACTIONS (22)
  - AGITATION [None]
  - BALANCE DISORDER [None]
  - CYANOPSIA [None]
  - DRY MOUTH [None]
  - DYSGEUSIA [None]
  - DYSPHEMIA [None]
  - FEELING ABNORMAL [None]
  - FEELING DRUNK [None]
  - FEELING OF DESPAIR [None]
  - HEADACHE [None]
  - HOT FLUSH [None]
  - HYPERHIDROSIS [None]
  - MIOSIS [None]
  - MOBILITY DECREASED [None]
  - MUSCLE SPASMS [None]
  - MUSCLE TIGHTNESS [None]
  - MUSCULAR WEAKNESS [None]
  - MUSCULOSKELETAL STIFFNESS [None]
  - PARAESTHESIA [None]
  - PERIPHERAL COLDNESS [None]
  - VISION BLURRED [None]
  - VISUAL IMPAIRMENT [None]
